FAERS Safety Report 12939456 (Version 1)
Quarter: 2016Q4

REPORT INFORMATION
  Report Type: Spontaneous
  Country: US (occurrence: US)
  Receive Date: 20161114
  Receipt Date: 20161114
  Transmission Date: 20170207
  Serious: Yes (Other)
  Sender: FDA-Public Use
  Company Number: None

PATIENT
  Age: 54 Year
  Sex: Female
  Weight: 67.05 kg

DRUGS (6)
  1. VITAMIN B12 [Concomitant]
     Active Substance: CYANOCOBALAMIN
  2. PROBIOTICS [Concomitant]
     Active Substance: PROBIOTICS NOS
  3. RENITIDINE [Concomitant]
  4. LEVAQUIN [Suspect]
     Active Substance: LEVOFLOXACIN
     Indication: DIVERTICULITIS
     Route: 048
  5. ESTRADIAL [Concomitant]
  6. VITAMIN D3 [Concomitant]
     Active Substance: CHOLECALCIFEROL

REACTIONS (9)
  - Palpitations [None]
  - Nasopharyngitis [None]
  - Paraesthesia [None]
  - Decreased appetite [None]
  - Nausea [None]
  - Dizziness [None]
  - Suicidal ideation [None]
  - Hypoaesthesia [None]
  - Somnolence [None]
